FAERS Safety Report 11925910 (Version 1)
Quarter: 2016Q1

REPORT INFORMATION
  Report Type: Spontaneous
  Country: US (occurrence: US)
  Receive Date: 20160119
  Receipt Date: 20160119
  Transmission Date: 20160526
  Serious: Yes (Other)
  Sender: FDA-Public Use
  Company Number: US-CIPLA LTD.-2016US00190

PATIENT

DRUGS (1)
  1. ALENDRONATE [Suspect]
     Active Substance: ALENDRONATE SODIUM
     Indication: OSTEOPOROSIS
     Dosage: 70 MG, 1TABLET A WEEK, IN THE MORNING WITH 4 GLASES OF WATER, IN AN EMPTY STOMACH
     Route: 048
     Dates: start: 201510

REACTIONS (8)
  - Myalgia [Unknown]
  - Urticaria [Unknown]
  - Dysphagia [Unknown]
  - Diarrhoea [Unknown]
  - Influenza [Unknown]
  - Bone pain [Unknown]
  - Arthralgia [Unknown]
  - Furuncle [Unknown]
